FAERS Safety Report 8349712 (Version 3)
Quarter: 2012Q4

REPORT INFORMATION
  Report Type: 
  Country: US (occurrence: US)
  Receive Date: 20120123
  Receipt Date: 20121008
  Transmission Date: 20130627
  Serious: Yes (Other)
  Sender: FDA-Public Use
  Company Number: US-PFIZER INC-2012014029

PATIENT
  Age: 57 Year
  Sex: Female
  Weight: 58.96 kg

DRUGS (13)
  1. LYRICA [Suspect]
     Indication: HERPES ZOSTER
     Dosage: 150 mg, 2x/day
     Route: 048
  2. LYRICA [Suspect]
     Indication: PAIN
     Dosage: 300 mg, 2x/day
     Route: 048
  3. LYRICA [Suspect]
     Indication: PRURITUS
  4. LYRICA [Suspect]
     Indication: NEUROPATHY PERIPHERAL
  5. LEVOXYL [Concomitant]
     Indication: THYROID DISORDER
     Dosage: 50 mg, daily
  6. VERAPAMIL [Concomitant]
     Indication: SYSTEMIC LUPUS ERYTHEMATOSUS
     Dosage: 200 mg, 2x/day
  7. MESTINON [Concomitant]
     Indication: MYASTHENIA GRAVIS
     Dosage: 60 mg in morning, 60 mg in afternoon and 180 mg at night
  8. ACTONEL [Concomitant]
     Indication: OSTEOPOROSIS
     Dosage: 35 mg, weekly
  9. COUMADIN [Concomitant]
     Indication: ANTIPHOSPHOLIPID SYNDROME
     Dosage: 7.5 mg, daily
  10. CYMBALTA [Concomitant]
     Indication: ANXIETY
     Dosage: 90 mg, daily
  11. CYMBALTA [Concomitant]
     Indication: DEPRESSION
  12. TRAMADOL [Concomitant]
     Indication: SYSTEMIC LUPUS ERYTHEMATOSUS
     Dosage: 10 mg, daily
  13. CELLCEPT [Concomitant]
     Indication: SYSTEMIC LUPUS ERYTHEMATOSUS
     Dosage: 500 mg, 2x/day

REACTIONS (6)
  - Blood test abnormal [Unknown]
  - White blood cell count decreased [Unknown]
  - Neuritis [Recovering/Resolving]
  - Panic reaction [Unknown]
  - Drug ineffective [Recovering/Resolving]
  - Irritability [Recovering/Resolving]
